FAERS Safety Report 10672581 (Version 1)
Quarter: 2014Q4

REPORT INFORMATION
  Report Type: Spontaneous
  Country: DE (occurrence: DE)
  Receive Date: 20141223
  Receipt Date: 20141223
  Transmission Date: 20150529
  Serious: Yes (Hospitalization)
  Sender: FDA-Public Use
  Company Number: DE-PFIZER INC-2014351808

PATIENT
  Age: 74 Year
  Sex: Female

DRUGS (19)
  1. ZOLOFT [Interacting]
     Active Substance: SERTRALINE HYDROCHLORIDE
     Dosage: 150 MG, 1X/DAY
     Route: 048
     Dates: start: 20120228
  2. SEROQUEL [Interacting]
     Active Substance: QUETIAPINE FUMARATE
     Dosage: 500-550 MG/DAY
     Route: 048
     Dates: start: 20120221, end: 20120302
  3. ZOLOFT [Interacting]
     Active Substance: SERTRALINE HYDROCHLORIDE
     Dosage: 125 MG, 1X/DAY
     Route: 048
     Dates: start: 20120208, end: 20120227
  4. TAVOR [Interacting]
     Active Substance: LORAZEPAM
     Dosage: 2 MG, 1X/DAY
     Route: 048
     Dates: start: 20120201, end: 20120203
  5. ORFIRIL [Interacting]
     Active Substance: VALPROIC ACID
     Dosage: 450 MG, 1X/DAY
     Route: 048
     Dates: start: 20120321
  6. SEROQUEL [Interacting]
     Active Substance: QUETIAPINE FUMARATE
     Dosage: 600 MG, 1X/DAY
     Route: 048
     Dates: start: 20120303, end: 20120313
  7. TAVOR [Interacting]
     Active Substance: LORAZEPAM
     Dosage: 2.5 MG, 1X/DAY
     Route: 048
     Dates: start: 20120204
  8. REMERGIL [Interacting]
     Active Substance: MIRTAZAPINE
     Dosage: 45 MG, 1X/DAY
     Route: 048
  9. SEROQUEL [Interacting]
     Active Substance: QUETIAPINE FUMARATE
     Dosage: 50-250 MG/DAY
     Route: 048
     Dates: start: 20120125, end: 20120206
  10. RISPERDAL [Interacting]
     Active Substance: RISPERIDONE
     Dosage: 1.5 MG, 1X/DAY
     Route: 048
     Dates: start: 20120315, end: 20120318
  11. RISPERDAL [Interacting]
     Active Substance: RISPERIDONE
     Dosage: 2 MG, 1X/DAY
     Route: 048
     Dates: start: 20120319
  12. ORFIRIL [Interacting]
     Active Substance: VALPROIC ACID
     Dosage: 150 MG, 1X/DAY
     Route: 048
     Dates: start: 20120315, end: 20120318
  13. RISPERDAL [Interacting]
     Active Substance: RISPERIDONE
     Dosage: 1 MG, 1X/DAY
     Route: 048
     Dates: start: 20120314, end: 20120314
  14. SEROQUEL [Interacting]
     Active Substance: QUETIAPINE FUMARATE
     Dosage: 300-450 MG/DAY
     Route: 048
     Dates: start: 20120207, end: 20120220
  15. ZOLOFT [Suspect]
     Active Substance: SERTRALINE HYDROCHLORIDE
     Dosage: 50-100 MG/DAY
     Route: 048
     Dates: start: 20120110, end: 20120207
  16. TAVOR [Interacting]
     Active Substance: LORAZEPAM
     Dosage: 1 MG, 1X/DAY
     Route: 048
     Dates: start: 20120109, end: 20120131
  17. SEROQUEL [Interacting]
     Active Substance: QUETIAPINE FUMARATE
     Dosage: 300 MG, 1X/DAY
     Route: 048
     Dates: start: 20120314
  18. RISPERDAL [Interacting]
     Active Substance: RISPERIDONE
     Dosage: 0.5 MG, 1X/DAY
     Route: 048
     Dates: start: 20120312, end: 20120313
  19. ORFIRIL [Interacting]
     Active Substance: VALPROIC ACID
     Dosage: 300 MG, 1X/DAY
     Route: 048
     Dates: start: 20120319, end: 20120320

REACTIONS (2)
  - Pulmonary embolism [Recovered/Resolved]
  - Drug interaction [Unknown]

NARRATIVE: CASE EVENT DATE: 20120324
